FAERS Safety Report 12010433 (Version 2)
Quarter: 2016Q1

REPORT INFORMATION
  Report Type: Spontaneous
  Country: CH (occurrence: AE)
  Receive Date: 20160205
  Receipt Date: 20160229
  Transmission Date: 20160526
  Serious: Yes (Life-Threatening)
  Sender: FDA-Public Use
  Company Number: CH-LPDUSPRD-20160091

PATIENT
  Age: 18 Year
  Sex: Female
  Weight: 54 kg

DRUGS (5)
  1. VITAMIN D [Concomitant]
     Active Substance: CHOLECALCIFEROL
     Dosage: 5000 IU, 1 IN 1 WEEK
     Route: 065
  2. FOLIC ACID. [Concomitant]
     Active Substance: FOLIC ACID
     Dosage: 5 MG, 1 IN 1 D
     Route: 065
  3. FERINJECT [Suspect]
     Active Substance: FERRIC CARBOXYMALTOSE
     Dosage: 1000 MG IN 250 ML NSS
     Route: 041
     Dates: start: 20160117, end: 20160117
  4. THYROXINE [Concomitant]
     Active Substance: LEVOTHYROXINE
     Dosage: 100 MG, 1 IN 1 D
     Route: 065
  5. ASACOL [Concomitant]
     Active Substance: MESALAMINE
     Dosage: 1600 MG (800 MG, 2 IN 1 D)
     Route: 048

REACTIONS (5)
  - Chest discomfort [Unknown]
  - Pruritus generalised [Unknown]
  - Abdominal pain [Unknown]
  - Rash generalised [Unknown]
  - Flushing [Unknown]

NARRATIVE: CASE EVENT DATE: 20160117
